FAERS Safety Report 13099265 (Version 2)
Quarter: 2017Q1

REPORT INFORMATION
  Report Type: Spontaneous
  Country: US (occurrence: US)
  Receive Date: 20170109
  Receipt Date: 20170303
  Transmission Date: 20170428
  Serious: No
  Sender: FDA-Public Use
  Company Number: US-ACTELION-A-NJ2017-148047

PATIENT
  Age: 69 Year
  Sex: Female

DRUGS (5)
  1. OPSUMIT [Suspect]
     Active Substance: MACITENTAN
     Indication: PULMONARY ARTERIAL HYPERTENSION
     Dosage: 10 MG, UNK
     Route: 048
     Dates: start: 20160817
  2. CIPROFLOXACIN. [Concomitant]
     Active Substance: CIPROFLOXACIN
  3. FLAGYL [Concomitant]
     Active Substance: METRONIDAZOLE\METRONIDAZOLE HYDROCHLORIDE
  4. MORPHINE SULFATE. [Concomitant]
     Active Substance: MORPHINE SULFATE
     Dosage: 10 MG, UNK
  5. OXYCODONE [Concomitant]
     Active Substance: OXYCODONE
     Dosage: 5 MG/ML, UNK

REACTIONS (3)
  - Upper respiratory tract infection [Not Recovered/Not Resolved]
  - Blood pressure decreased [Unknown]
  - Productive cough [Not Recovered/Not Resolved]
